FAERS Safety Report 7311051-1 (Version None)
Quarter: 2011Q1

REPORT INFORMATION
  Report Type: 
  Country: None (occurrence: None)
  Receive Date: 20110224
  Receipt Date: 20110215
  Transmission Date: 20110831
  Serious: Yes (Other)
  Sender: FDA-Public Use
  Company Number: US-PFIZER INC-2010169358

PATIENT
  Sex: Female

DRUGS (2)
  1. XALATAN [Suspect]
  2. XALATAN [Suspect]
     Dosage: UNK

REACTIONS (3)
  - DYSPNOEA [None]
  - PRODUCTIVE COUGH [None]
  - EPISTAXIS [None]
